FAERS Safety Report 4918060-8 (Version None)
Quarter: 2006Q1

REPORT INFORMATION
  Report Type: 
  Country: None (occurrence: None)
  Receive Date: 20060221
  Receipt Date: 20050930
  Transmission Date: 20060701
  Serious: Yes (Death, Hospitalization)
  Sender: FDA-Public Use
  Company Number: US-MERCK-0510USA00705

PATIENT
  Age: 61 Year
  Sex: Male
  Weight: 88 kg

DRUGS (5)
  1. VIOXX [Suspect]
     Indication: ARTHRITIS
     Route: 048
     Dates: start: 20000726, end: 20020307
  2. ACIPHEX [Concomitant]
     Route: 065
  3. GUAIFENESIN [Concomitant]
     Route: 065
  4. NORVASC [Concomitant]
     Route: 065
  5. VIAGRA [Concomitant]
     Route: 065

REACTIONS (5)
  - ARTERIOSCLEROSIS [None]
  - HYPERTENSIVE HEART DISEASE [None]
  - MYOCARDIAL INFARCTION [None]
  - PNEUMONIA [None]
  - SUDDEN DEATH [None]
